FAERS Safety Report 25488681 (Version 1)
Quarter: 2025Q2

REPORT INFORMATION
  Report Type: Spontaneous
  Country: US (occurrence: US)
  Receive Date: 20250627
  Receipt Date: 20250627
  Transmission Date: 20250717
  Serious: No
  Sender: SEPTODONT
  Company Number: US-SEPTODONT-2024018790

PATIENT
  Age: 39 Year
  Sex: Female
  Weight: 52 kg

DRUGS (5)
  1. ORAVERSE [Suspect]
     Active Substance: PHENTOLAMINE MESYLATE
     Indication: Anaesthesia reversal
     Route: 004
     Dates: start: 20240703
  2. ORAVERSE [Suspect]
     Active Substance: PHENTOLAMINE MESYLATE
     Indication: Anaesthesia reversal
     Route: 004
     Dates: start: 20240703
  3. ORABLOC [Suspect]
     Active Substance: ARTICAINE HYDROCHLORIDE\EPINEPHRINE BITARTRATE
     Indication: Local anaesthesia
     Dates: start: 20240703
  4. MIRENA [Concomitant]
     Active Substance: LEVONORGESTREL
  5. Monolinyah - 25 mg [Concomitant]

REACTIONS (1)
  - Swelling face [Not Recovered/Not Resolved]

NARRATIVE: CASE EVENT DATE: 20240703
